FAERS Safety Report 17933272 (Version 1)
Quarter: 2020Q2

REPORT INFORMATION
  Report Type: Spontaneous
  Country: US (occurrence: US)
  Receive Date: 20200624
  Receipt Date: 20200624
  Transmission Date: 20200714
  Serious: No
  Sender: FDA-Public Use
  Company Number: US-AUROBINDO-AUR-APL-2019-058019

PATIENT
  Age: 67 Year
  Sex: Female
  Weight: 45.3 kg

DRUGS (2)
  1. ZOLPIDEM TARTRATE TABLETS 10 MG [Suspect]
     Active Substance: ZOLPIDEM TARTRATE
     Dosage: UNK, TOOK FOR SECOND TIME
     Route: 065
     Dates: start: 20190825, end: 20190826
  2. ZOLPIDEM TARTRATE TABLETS 10 MG [Suspect]
     Active Substance: ZOLPIDEM TARTRATE
     Indication: INSOMNIA
     Dosage: UNK, TOOK FIRST DOSE (ONE AT BED TIME (NOT EVERY DAY)
     Route: 065
     Dates: start: 20190729

REACTIONS (4)
  - Product substitution issue [Unknown]
  - Dizziness [Not Recovered/Not Resolved]
  - Wrong technique in product usage process [Unknown]
  - Disorientation [Not Recovered/Not Resolved]

NARRATIVE: CASE EVENT DATE: 20190730
